FAERS Safety Report 8798300 (Version 2)
Quarter: 2012Q4

REPORT INFORMATION
  Report Type: 
  Country: US (occurrence: US)
  Receive Date: 20120920
  Receipt Date: 20121102
  Transmission Date: 20130627
  Serious: Yes (Hospitalization)
  Sender: FDA-Public Use
  Company Number: US-B.I. PHARMACEUTICALS,INC./RIDGEFIELD-2012-BP-22715BP

PATIENT
  Age: 58 Year
  Sex: Male

DRUGS (5)
  1. PRADAXA [Suspect]
     Indication: CEREBROVASCULAR ACCIDENT PROPHYLAXIS
     Route: 048
     Dates: start: 20120721, end: 20120722
  2. PRADAXA [Suspect]
     Indication: ATRIAL FIBRILLATION
  3. ASPIRIN [Concomitant]
     Indication: THROMBOSIS PROPHYLAXIS
     Dosage: 325 mg
     Route: 048
  4. LASIX [Concomitant]
     Indication: PULMONARY OEDEMA
     Dosage: 20 mg
     Route: 048
  5. TOPROL XL [Concomitant]
     Indication: ATRIAL FIBRILLATION
     Dosage: 100 mg
     Route: 048
     Dates: start: 201207

REACTIONS (1)
  - Cerebrovascular accident [Recovered/Resolved]
